FAERS Safety Report 8838957 (Version 1)
Quarter: 2012Q4

REPORT INFORMATION
  Report Type: Spontaneous
  Country: US (occurrence: None)
  Receive Date: 20121011
  Receipt Date: 20121011
  Transmission Date: 20130627
  Serious: Yes (Hospitalization)
  Sender: FDA-Public Use
  Company Number: None

PATIENT
  Age: 47 Year
  Sex: Male
  Weight: 98.6 kg

DRUGS (1)
  1. PROLASTIN-C [Suspect]
     Indication: ALPHA-1 ANTI-TRYPSIN DEFICIENCY
     Dosage: 5955 mg weekly IV
     Route: 042
     Dates: start: 20121004

REACTIONS (7)
  - Nausea [None]
  - Headache [None]
  - Chest pain [None]
  - Abdominal pain upper [None]
  - Back pain [None]
  - White blood cell count increased [None]
  - Drug hypersensitivity [None]
